FAERS Safety Report 23556072 (Version 2)
Quarter: 2024Q1

REPORT INFORMATION
  Report Type: Spontaneous
  Country: US (occurrence: US)
  Receive Date: 20240222
  Receipt Date: 20240304
  Transmission Date: 20240410
  Serious: No
  Sender: FDA-Public Use
  Company Number: US-JNJFOC-20240258250

PATIENT
  Age: 20 Year
  Sex: Female

DRUGS (1)
  1. SPRAVATO [Suspect]
     Active Substance: ESKETAMINE
     Indication: Product used for unknown indication
     Dosage: PATIENT GOT HER DOSE ON 07-FEB-2024.
     Route: 045
     Dates: start: 202310

REACTIONS (2)
  - Device issue [Unknown]
  - Incorrect dose administered by device [Unknown]
